FAERS Safety Report 10052692 (Version 1)
Quarter: 2014Q1

REPORT INFORMATION
  Report Type: Spontaneous
  Country: GB (occurrence: None)
  Receive Date: 20140331
  Receipt Date: 20140331
  Transmission Date: 20141002
  Serious: Yes (Life-Threatening, Hospitalization)
  Sender: FDA-Public Use
  Company Number: 2262160

PATIENT
  Age: 69 Year
  Sex: Male
  Weight: 68 kg

DRUGS (13)
  1. VINCRISTINE SULFATE [Suspect]
     Indication: B-CELL LYMPHOMA
     Dates: start: 20130917, end: 20131106
  2. CYCLOPHOSPHAMIDE [Suspect]
     Indication: B-CELL LYMPHOMA
     Dates: start: 20130917, end: 20131106
  3. LIPOSOMAL DOXORUBICIN HYDROCHLORIDE [Suspect]
     Indication: B-CELL LYMPHOMA
     Route: 042
     Dates: start: 20130917, end: 20131106
  4. PREDNISOLONE [Suspect]
     Indication: B-CELL LYMPHOMA
     Dates: start: 20130917, end: 20131110
  5. RITUXIMAB [Suspect]
     Indication: B-CELL LYMPHOMA
     Dates: start: 20130916, end: 20131106
  6. BORTEZOMIB [Suspect]
     Indication: B-CELL LYMPHOMA
     Dates: start: 20131011, end: 20131113
  7. CHLORPHENAMINE [Concomitant]
  8. HYDROCORTISONE [Concomitant]
  9. PARACETAMOL [Concomitant]
  10. DOMPERIDONE [Concomitant]
  11. LENOGRASTIM [Concomitant]
  12. OMEPRAZOLE [Concomitant]
  13. ONDANSETRON [Concomitant]

REACTIONS (8)
  - Hypophosphataemia [None]
  - Anaemia [None]
  - Neutropenic sepsis [None]
  - Infection [None]
  - Malaise [None]
  - Febrile neutropenia [None]
  - Hypotension [None]
  - Toxicity to various agents [None]
